FAERS Safety Report 5450078-1 (Version None)
Quarter: 2007Q3

REPORT INFORMATION
  Report Type: 
  Country: None (occurrence: None)
  Receive Date: 20070912
  Receipt Date: 20070828
  Transmission Date: 20080115
  Serious: Yes (Other)
  Sender: FDA-Public Use
  Company Number: GB-MERCK-0708USA05396

PATIENT
  Age: 64 Year
  Sex: Male

DRUGS (4)
  1. PRINIVIL [Suspect]
     Indication: HYPERTENSION
     Route: 048
     Dates: start: 20070430, end: 20070808
  2. CLOPIDOGREL BISULFATE [Concomitant]
     Route: 048
     Dates: start: 20040906
  3. RANITIDINE [Concomitant]
     Route: 065
     Dates: start: 20040726
  4. TADALAFIL [Concomitant]
     Route: 048
     Dates: start: 20070727

REACTIONS (2)
  - BLISTER [None]
  - RASH GENERALISED [None]
